FAERS Safety Report 23371812 (Version 1)
Quarter: 2024Q1

REPORT INFORMATION
  Report Type: Spontaneous
  Country: US (occurrence: None)
  Receive Date: 20240105
  Receipt Date: 20240105
  Transmission Date: 20240410
  Serious: No
  Sender: FDA-Public Use
  Company Number: None

PATIENT
  Sex: Female

DRUGS (5)
  1. XOLAIR [Suspect]
     Active Substance: OMALIZUMAB
     Indication: Asthma
     Route: 058
     Dates: start: 20230127
  2. BENZONATATE CAP 100MG [Concomitant]
  3. DUPIXENT 300 MG/2ML SYR (4=2) [Concomitant]
  4. MONTELUKAST TAB 10MG [Concomitant]
  5. PREDNISONE TAB 20MG [Concomitant]

REACTIONS (1)
  - Asthma [None]
